FAERS Safety Report 7783475-X (Version None)
Quarter: 2011Q3

REPORT INFORMATION
  Report Type: 
  Country: None (occurrence: None)
  Receive Date: 20110928
  Receipt Date: 20110921
  Transmission Date: 20111222
  Serious: Yes (Hospitalization)
  Sender: FDA-Public Use
  Company Number: FR-PFIZER INC-2011225556

PATIENT
  Age: 44 Year
  Sex: Male

DRUGS (15)
  1. VFEND [Suspect]
     Indication: PROPHYLAXIS
     Dosage: 200 MG, 2X/DAY
     Dates: start: 20110812, end: 20110821
  2. VALGANCICLOVIR [Suspect]
     Dosage: UNK
     Dates: end: 20110821
  3. FERROUS SULFATE TAB [Concomitant]
  4. NEORAL [Concomitant]
  5. PREDNISONE [Concomitant]
  6. TENORMIN [Concomitant]
  7. AMOXICILLIN [Concomitant]
  8. VFEND [Suspect]
     Dosage: 100 MG, 2X/DAY
     Dates: start: 20110822, end: 20110823
  9. MYCOPHENOLATE MOFETIL (CELLCEPT) [Concomitant]
  10. PANTOPRAZOLE [Suspect]
     Dosage: UNK
     Dates: end: 20110821
  11. ASPIRIN [Concomitant]
  12. SPECIAFOLDINE [Concomitant]
  13. SODIUM BICARBONATE [Concomitant]
  14. KAYEXALATE [Concomitant]
  15. EPREX [Concomitant]

REACTIONS (1)
  - CYTOLYTIC HEPATITIS [None]
